FAERS Safety Report 8546959 (Version 3)
Quarter: 2012Q4

REPORT INFORMATION
  Report Type: 
  Country: US (occurrence: US)
  Receive Date: 20120504
  Receipt Date: 20121213
  Transmission Date: 20130627
  Serious: No
  Sender: FDA-Public Use
  Company Number: US-PFIZER INC-2012107189

PATIENT
  Age: 62 Year
  Sex: Female
  Weight: 63.49 kg

DRUGS (3)
  1. CHANTIX [Suspect]
     Indication: SMOKING CESSATION THERAPY
     Dosage: 0.5 mg, 2x/day
     Route: 048
     Dates: start: 201202, end: 2012
  2. CHANTIX [Suspect]
     Dosage: 1 mg, 2x/day
     Route: 048
     Dates: start: 2012, end: 2012
  3. CHANTIX [Suspect]
     Dosage: UNK, 2x/day
     Route: 048
     Dates: start: 2012, end: 2012

REACTIONS (5)
  - Nausea [Unknown]
  - Vomiting [Unknown]
  - Panic attack [Unknown]
  - Stress [Unknown]
  - Anxiety [Unknown]
